FAERS Safety Report 4870973-1 (Version None)
Quarter: 2005Q4

REPORT INFORMATION
  Report Type: 
  Country: None (occurrence: None)
  Receive Date: 20051229
  Receipt Date: 20051214
  Transmission Date: 20060501
  Serious: Yes (Other)
  Sender: FDA-Public Use
  Company Number: CA_050908663

PATIENT
  Age: 77 Year
  Sex: Female

DRUGS (10)
  1. FORTEO [Suspect]
     Indication: OSTEOPOROSIS
     Dosage: 20 UG, DAILY (1/D)
     Dates: start: 20050604
  2. SULCRATE (SUCRALFATE) [Concomitant]
  3. L-THYROXINE [Concomitant]
  4. QUININE SULPHATE [Concomitant]
  5. VITAMIN D [Concomitant]
  6. GLUCOSAMINE [Concomitant]
  7. CALCIUM GLUCONATE [Concomitant]
  8. LOSEC (OMEPRAZOLE SODIUM) [Concomitant]
  9. ASPIRIN [Concomitant]
  10. FORTEO PEN,250MCG/ML(3ML) (FORTEO PEN 250MCG/ML (3ML)) PEN,DISPOSABLE [Concomitant]

REACTIONS (2)
  - CARCINOEMBRYONIC ANTIGEN INCREASED [None]
  - LUNG NEOPLASM MALIGNANT [None]
